FAERS Safety Report 6503472-1 (Version None)
Quarter: 2009Q4

REPORT INFORMATION
  Report Type: 
  Country: None (occurrence: None)
  Receive Date: 20091217
  Receipt Date: 20091208
  Transmission Date: 20100525
  Serious: Yes (Other)
  Sender: FDA-Public Use
  Company Number: GXKR2009ES13239

PATIENT
  Age: 70 Year
  Sex: Male

DRUGS (1)
  1. PRAVASTATIN [Suspect]
     Indication: HYPERCHOLESTEROLAEMIA
     Dosage: 20 MG/DAY
     Route: 065

REACTIONS (5)
  - EXOSTOSIS [None]
  - MYOPATHY [None]
  - SKIN NECROSIS [None]
  - SKIN ULCER [None]
  - TELANGIECTASIA [None]
